FAERS Safety Report 12402724 (Version 1)
Quarter: 2016Q2

REPORT INFORMATION
  Report Type: Report from Study
  Country: JP (occurrence: JP)
  Receive Date: 20160525
  Receipt Date: 20160525
  Transmission Date: 20160815
  Serious: Yes (Hospitalization)
  Sender: FDA-Public Use
  Company Number: JP-WARNER CHILCOTT 2016-000808

PATIENT
  Age: 75 Year
  Sex: Male

DRUGS (11)
  1. ACTONEL [Suspect]
     Active Substance: RISEDRONATE SODIUM
     Indication: OSTEOPOROSIS
     Route: 048
     Dates: start: 20130719, end: 20151225
  2. DIASTASE [Concomitant]
     Active Substance: DIASTASE
  3. ADSORBIN [Concomitant]
     Active Substance: ALUMINUM SILICATE
  4. ONEALFA [Concomitant]
     Active Substance: ALFACALCIDOL
     Dates: end: 20151225
  5. BIODIASTASE 1000 [Concomitant]
  6. BIOFERMIN [Concomitant]
     Active Substance: BACILLUS SUBTILIS\LACTOBACILLUS ACIDOPHILUS\STREPTOCOCCUS FAECAIS
  7. CALONAL [Concomitant]
     Active Substance: ACETAMINOPHEN
  8. LYRICA [Concomitant]
     Active Substance: PREGABALIN
  9. OMEPRAZOLE. [Concomitant]
     Active Substance: OMEPRAZOLE
  10. LEVOFLOXACIN HEMIHYDRATE [Concomitant]
     Active Substance: LEVOFLOXACIN
  11. CELECOX [Concomitant]
     Active Substance: CELECOXIB

REACTIONS (3)
  - Arthralgia [Unknown]
  - Osteonecrosis [None]
  - Stress fracture [Unknown]
